FAERS Safety Report 13288670 (Version 1)
Quarter: 2017Q1

REPORT INFORMATION
  Report Type: Spontaneous
  Country: JP (occurrence: JP)
  Receive Date: 20170302
  Receipt Date: 20170302
  Transmission Date: 20170428
  Serious: Yes (Other)
  Sender: FDA-Public Use
  Company Number: JP-ASTELLAS-2017JP003552AA

PATIENT
  Age: 88 Year
  Sex: Female

DRUGS (2)
  1. BETANIS [Suspect]
     Active Substance: MIRABEGRON
     Indication: PRODUCT USED FOR UNKNOWN INDICATION
     Route: 048
     Dates: start: 20170104
  2. ARICEPT [Concomitant]
     Active Substance: DONEPEZIL HYDROCHLORIDE
     Indication: CEREBRAL ATROPHY
     Dosage: UNK UNK, UNKNOWN FREQ.
     Route: 065

REACTIONS (8)
  - Somnolence [Unknown]
  - Malaise [Unknown]
  - Muscular weakness [Unknown]
  - Meningitis [Unknown]
  - Dysarthria [Unknown]
  - Visual acuity reduced [Unknown]
  - Cerebral atrophy [Unknown]
  - Dizziness [Unknown]

NARRATIVE: CASE EVENT DATE: 2017
